FAERS Safety Report 7587886-7 (Version None)
Quarter: 2011Q3

REPORT INFORMATION
  Report Type: 
  Country: None (occurrence: None)
  Receive Date: 20110705
  Receipt Date: 20110627
  Transmission Date: 20111222
  Serious: No
  Sender: FDA-Public Use
  Company Number: US-BIOGENIDEC-2011BI023479

PATIENT
  Sex: Female

DRUGS (2)
  1. ANTI-ANXIETY [Concomitant]
     Indication: PRODUCT USED FOR UNKNOWN INDICATION
  2. TYSABRI [Suspect]
     Indication: MULTIPLE SCLEROSIS
     Route: 042
     Dates: start: 20101231

REACTIONS (3)
  - URINARY TRACT INFECTION [None]
  - ASTHENIA [None]
  - DEPRESSED MOOD [None]
